FAERS Safety Report 7166726-4 (Version None)
Quarter: 2010Q4

REPORT INFORMATION
  Report Type: 
  Country: None (occurrence: None)
  Receive Date: 20101216
  Receipt Date: 20101207
  Transmission Date: 20110411
  Serious: Yes (Death, Hospitalization, Other)
  Sender: FDA-Public Use
  Company Number: DE-ROCHE-734223

PATIENT
  Sex: Female
  Weight: 80 kg

DRUGS (6)
  1. BEVACIZUMAB [Suspect]
     Indication: BRONCHIAL CARCINOMA
     Route: 042
     Dates: start: 20100930
  2. ALIMTA [Suspect]
     Indication: BRONCHIAL CARCINOMA
     Route: 042
     Dates: start: 20100930
  3. CISPLATIN [Concomitant]
     Indication: BRONCHIAL CARCINOMA
     Route: 042
     Dates: start: 20100930
  4. GRANISETRON HCL [Concomitant]
     Indication: BRONCHIAL CARCINOMA
     Route: 042
     Dates: start: 20100930
  5. EMEND [Concomitant]
     Indication: BRONCHIAL CARCINOMA
     Route: 048
     Dates: start: 20100930
  6. MARCUMAR [Concomitant]

REACTIONS (3)
  - DEATH [None]
  - DIZZINESS [None]
  - PULMONARY EMBOLISM [None]
